FAERS Safety Report 25981046 (Version 1)
Quarter: 2025Q4

REPORT INFORMATION
  Report Type: Spontaneous
  Country: US (occurrence: US)
  Receive Date: 20251030
  Receipt Date: 20251030
  Transmission Date: 20260117
  Serious: Yes (Life-Threatening, Other)
  Sender: PFIZER
  Company Number: US-PFIZER INC-PV202500127198

PATIENT
  Age: 21 Year
  Sex: Female
  Weight: 52 kg

DRUGS (7)
  1. DEXMEDETOMIDINE HYDROCHLORIDE [Interacting]
     Active Substance: DEXMEDETOMIDINE HYDROCHLORIDE
     Indication: Paget-Schroetter syndrome
     Dosage: 1 UG/KG (LOADING DOSE)
     Route: 042
  2. DEXMEDETOMIDINE HYDROCHLORIDE [Interacting]
     Active Substance: DEXMEDETOMIDINE HYDROCHLORIDE
     Dosage: 1 MEG/KG/H (SUBSEQUENT INFUSION)
     Route: 042
  3. DEXMEDETOMIDINE HYDROCHLORIDE [Interacting]
     Active Substance: DEXMEDETOMIDINE HYDROCHLORIDE
     Dosage: 0.6 MCG/KG/H (INFUSION)
     Route: 042
  4. GLYCOPYRROLATE [Interacting]
     Active Substance: GLYCOPYRROLATE
     Indication: Bradycardia
     Dosage: TWO SEPARATE PUSHES OF 0.2 MG IV 3 MINUTES APART
     Route: 042
  5. FENTANYL [Concomitant]
     Active Substance: FENTANYL
     Indication: Paget-Schroetter syndrome
     Dosage: 25 UG
     Route: 042
  6. HEPARIN [Concomitant]
     Active Substance: HEPARIN SODIUM
     Indication: Paget-Schroetter syndrome
     Dosage: 4000 IU
     Route: 042
  7. HEPARIN [Concomitant]
     Active Substance: HEPARIN SODIUM
     Dosage: 3000 IU (BOLUS)
     Route: 042

REACTIONS (4)
  - Drug interaction [Recovered/Resolved]
  - Acute pulmonary oedema [Recovered/Resolved]
  - Vasoconstriction [Recovered/Resolved]
  - Hypertension [Recovered/Resolved]
